FAERS Safety Report 17391096 (Version 8)
Quarter: 2020Q2

REPORT INFORMATION
  Report Type: Spontaneous
  Country: US (occurrence: US)
  Receive Date: 20200207
  Receipt Date: 20200625
  Transmission Date: 20200713
  Serious: Yes (Hospitalization, Other)
  Sender: FDA-Public Use
  Company Number: US-UNITED THERAPEUTICS-UNT-2020-000725

PATIENT
  Age: 80 Year
  Sex: Female
  Weight: 53.06 kg

DRUGS (9)
  1. TYVASO [Suspect]
     Active Substance: TREPROSTINIL
     Indication: PULMONARY ARTERIAL HYPERTENSION
     Dosage: UNK
     Dates: start: 20160503
  2. TYVASO [Suspect]
     Active Substance: TREPROSTINIL
     Dosage: UNK
  3. TYVASO [Suspect]
     Active Substance: TREPROSTINIL
     Dosage: 18-54 ?G, QID
  4. TYVASO [Suspect]
     Active Substance: TREPROSTINIL
     Dosage: UNK
  5. OPSUMIT [Suspect]
     Active Substance: MACITENTAN
     Indication: PRODUCT USED FOR UNKNOWN INDICATION
     Dosage: UNK
     Route: 065
  6. TYVASO [Suspect]
     Active Substance: TREPROSTINIL
     Dosage: 60-120 ?G, QID
  7. AMBRISENTAN [Suspect]
     Active Substance: AMBRISENTAN
     Indication: PULMONARY ARTERIAL HYPERTENSION
     Dosage: 10 MG, QD
     Route: 048
     Dates: start: 20160322
  8. TYVASO [Suspect]
     Active Substance: TREPROSTINIL
     Dosage: UNK
  9. LETAIRIS [Suspect]
     Active Substance: AMBRISENTAN
     Indication: PRODUCT USED FOR UNKNOWN INDICATION
     Dosage: UNK
     Route: 065

REACTIONS (20)
  - Weight decreased [Unknown]
  - Dyspnoea [Unknown]
  - Chronic obstructive pulmonary disease [Unknown]
  - Cardiac failure congestive [Not Recovered/Not Resolved]
  - Mobility decreased [Unknown]
  - Loss of consciousness [Unknown]
  - Malaise [Not Recovered/Not Resolved]
  - Asthenia [Unknown]
  - Fluid retention [Unknown]
  - Feeling abnormal [Unknown]
  - Chest pain [Unknown]
  - Visual impairment [Unknown]
  - Off label use [Unknown]
  - Anaphylactic reaction [Unknown]
  - Decreased appetite [Unknown]
  - Gait disturbance [Unknown]
  - Osteoporosis [Unknown]
  - Bronchitis [Not Recovered/Not Resolved]
  - Drug hypersensitivity [Unknown]
  - Calcinosis [Unknown]

NARRATIVE: CASE EVENT DATE: 20200113
